FAERS Safety Report 5413786-4 (Version None)
Quarter: 2007Q3

REPORT INFORMATION
  Report Type: 
  Country: None (occurrence: None)
  Receive Date: 20070810
  Receipt Date: 20070720
  Transmission Date: 20080115
  Serious: Yes (Death)
  Sender: FDA-Public Use
  Company Number: 2007RR-08843

PATIENT
  Age: 75 Year
  Sex: Female

DRUGS (7)
  1. SERTRALINE [Suspect]
     Dosage: 50 MG, BID
  2. CARBAMAZEPINE [Suspect]
     Dosage: 200 MG, BID
  3. PERICIAZINE (PERICIAZINE) [Suspect]
     Dosage: 5 MG, TID
  4. VANCOMYCIN HYDROCHLORIDE [Concomitant]
  5. CIPROFLOXACIN [Concomitant]
  6. FUROSEMIDE [Concomitant]
  7. NORADRENALINE (NORADRENALINE) [Concomitant]

REACTIONS (6)
  - ACUTE RESPIRATORY DISTRESS SYNDROME [None]
  - LUNG INJURY [None]
  - MULTI-ORGAN FAILURE [None]
  - PNEUMONIA [None]
  - PULMONARY OEDEMA [None]
  - RESPIRATORY FAILURE [None]
